FAERS Safety Report 23227348 (Version 1)
Quarter: 2023Q4

REPORT INFORMATION
  Report Type: Spontaneous
  Country: CA (occurrence: CA)
  Receive Date: 20231124
  Receipt Date: 20231124
  Transmission Date: 20240109
  Serious: Yes (Death, Other)
  Sender: FDA-Public Use
  Company Number: CA-PFIZER INC-202300225179

PATIENT
  Age: 76 Year
  Sex: Female

DRUGS (3)
  1. XELJANZ [Suspect]
     Active Substance: TOFACITINIB CITRATE
     Indication: Rheumatoid arthritis
     Dosage: 5 MG, 2X/DAY
     Route: 048
     Dates: start: 20230610
  2. SHINGRIX [Suspect]
     Active Substance: RECOMBINANT VARICELLA ZOSTER VIRUS (VZV) GLYCOPROTEIN E
     Dosage: DOSE NUMBER UNKNOWN, SINGLE
     Dates: start: 20230609, end: 20230609
  3. PREDNISONE [Concomitant]
     Active Substance: PREDNISONE
     Dosage: UNK

REACTIONS (8)
  - Gastrointestinal haemorrhage [Fatal]
  - Chronic kidney disease [Fatal]
  - Interstitial lung disease [Fatal]
  - Pain [Unknown]
  - Osteoarthritis [Unknown]
  - Abdominal discomfort [Unknown]
  - Faeces soft [Unknown]
  - Diarrhoea [Unknown]

NARRATIVE: CASE EVENT DATE: 20230601
